FAERS Safety Report 17647815 (Version 1)
Quarter: 2020Q2

REPORT INFORMATION
  Report Type: Spontaneous
  Country: US (occurrence: US)
  Receive Date: 20200408
  Receipt Date: 20200408
  Transmission Date: 20200713
  Serious: No
  Sender: FDA-Public Use
  Company Number: US-BIOGEN-2020BI00854731

PATIENT
  Age: 59 Year
  Sex: Female

DRUGS (10)
  1. CLONAZEPAM. [Concomitant]
     Active Substance: CLONAZEPAM
     Indication: SEIZURE
     Dosage: TAKES-3 TIMES A DAY FOR SEIZURES
     Route: 065
  2. ATORVASTATIN [Concomitant]
     Active Substance: ATORVASTATIN
     Dosage: 20 MG ONE IN THE MORNING AND ONE AT NIGHT
     Route: 065
  3. IRBESARTAN. [Concomitant]
     Active Substance: IRBESARTAN
     Dosage: 300 MG ONCE IN THE MORNING
     Route: 065
  4. TECFIDERA [Suspect]
     Active Substance: DIMETHYL FUMARATE
     Indication: MULTIPLE SCLEROSIS
     Route: 065
     Dates: start: 20131002
  5. COPAXONE [Concomitant]
     Active Substance: GLATIRAMER ACETATE
     Dosage: 100 MG IN THE MORNING AND NIGHT
     Route: 065
  6. APIRMATE (NOS) [Concomitant]
     Dosage: 100 IN THE MORNING AND ONE AT NIGHT
     Route: 065
  7. METRAPROZILE (NOS) [Concomitant]
     Dosage: 40 MG IN THE MORNING
     Route: 065
  8. KEPPRA [Suspect]
     Active Substance: LEVETIRACETAM
     Indication: PRODUCT USED FOR UNKNOWN INDICATION
     Route: 065
  9. IFLEXO (NOS) [Concomitant]
     Dosage: 150 MG ONE IN THE MORNING AND ONE AT NIGHT.
     Route: 065
  10. LEVOCETIRIZINE [Concomitant]
     Active Substance: LEVOCETIRIZINE
     Dosage: 5MG ONCE A DAY IN THE MORNING
     Route: 065

REACTIONS (3)
  - Rash [Unknown]
  - Palpitations [Unknown]
  - Multiple sclerosis [Not Recovered/Not Resolved]

NARRATIVE: CASE EVENT DATE: 20200402
